FAERS Safety Report 14993528 (Version 2)
Quarter: 2018Q2

REPORT INFORMATION
  Report Type: Spontaneous
  Country: GB (occurrence: GB)
  Receive Date: 20180611
  Receipt Date: 20180615
  Transmission Date: 20180711
  Serious: Yes (Other)
  Sender: FDA-Public Use
  Company Number: GB-AUROBINDO-AUR-APL-2018-029802

PATIENT
  Sex: Female

DRUGS (2)
  1. MIRTAZAPINE ACTAVIS [Concomitant]
     Active Substance: MIRTAZAPINE
     Indication: PRODUCT USED FOR UNKNOWN INDICATION
     Dosage: UNK
     Route: 065
  2. SERTRALINE AUROBINDO [Suspect]
     Active Substance: SERTRALINE HYDROCHLORIDE
     Indication: ANXIETY
     Dosage: 50 MILLIGRAM
     Route: 048
     Dates: start: 20180417, end: 20180508

REACTIONS (9)
  - Dyspepsia [Recovering/Resolving]
  - Gastrooesophageal reflux disease [Unknown]
  - Suicidal ideation [Not Recovered/Not Resolved]
  - Depression [Not Recovered/Not Resolved]
  - Anxiety [Not Recovered/Not Resolved]
  - Retching [Recovering/Resolving]
  - Mental disorder [Recovering/Resolving]
  - Product substitution issue [Unknown]
  - Condition aggravated [Not Recovered/Not Resolved]
